FAERS Safety Report 8338107-9 (Version None)
Quarter: 2012Q2

REPORT INFORMATION
  Report Type: 
  Country: None (occurrence: None)
  Receive Date: 20120504
  Receipt Date: 20120501
  Transmission Date: 20120825
  Serious: Yes (Hospitalization, Other)
  Sender: FDA-Public Use
  Company Number: US-GILEAD-2012-0053476

PATIENT
  Age: 43 Year
  Sex: Female

DRUGS (11)
  1. ASPIRIN [Concomitant]
  2. LIPITOR [Concomitant]
     Dosage: 80 MG, UNK
  3. PLAVIX [Concomitant]
  4. METOPROLOL TARTRATE [Concomitant]
  5. BACTRIM DS [Concomitant]
  6. PRILOSEC [Concomitant]
  7. RANEXA [Suspect]
     Indication: CHEST PAIN
  8. ATRIPLA [Concomitant]
  9. LIPITOR [Concomitant]
     Dosage: 40 MG, UNK
     Dates: start: 20120320
  10. REMERON [Concomitant]
     Indication: INSOMNIA
  11. NITROGLYCERIN [Concomitant]

REACTIONS (8)
  - CHEST PAIN [None]
  - RHINORRHOEA [None]
  - TRANSAMINASES INCREASED [None]
  - DRUG INTERACTION [None]
  - RHABDOMYOLYSIS [None]
  - ANAEMIA [None]
  - RENAL FAILURE ACUTE [None]
  - COUGH [None]
